FAERS Safety Report 14609277 (Version 8)
Quarter: 2018Q2

REPORT INFORMATION
  Report Type: Spontaneous
  Country: FR (occurrence: FR)
  Receive Date: 20180307
  Receipt Date: 20180629
  Transmission Date: 20180711
  Serious: Yes (Hospitalization, Other)
  Sender: FDA-Public Use
  Company Number: FR-SA-2018SA061776

PATIENT
  Age: 30 Year
  Sex: Female
  Weight: 110 kg

DRUGS (18)
  1. GENTAMICIN SULPHATE [Suspect]
     Active Substance: GENTAMICIN SULFATE
     Indication: ANTIBIOTIC PROPHYLAXIS
     Dosage: 3.2 G,UNK
     Route: 042
     Dates: start: 20171101, end: 20171101
  2. XYZALL [Suspect]
     Active Substance: LEVOCETIRIZINE DIHYDROCHLORIDE
     Indication: RASH PRURITIC
     Dosage: 5 MG,UNK
     Route: 048
     Dates: start: 20171101, end: 20171101
  3. LEVOCETIRIZINE DIHYDROCHLORIDE. [Suspect]
     Active Substance: LEVOCETIRIZINE DIHYDROCHLORIDE
     Indication: RASH PRURITIC
     Dosage: 5 MG,UNK
     Route: 048
     Dates: start: 20171101, end: 20171101
  4. METRONIDAZOLE. [Suspect]
     Active Substance: METRONIDAZOLE
     Indication: ANTIBIOTIC PROPHYLAXIS
     Dosage: 500 MG,UNK
     Route: 042
     Dates: start: 20171101, end: 20171101
  5. MORPHINE SULFATE. [Suspect]
     Active Substance: MORPHINE SULFATE
     Indication: PROCEDURAL PAIN
     Dosage: 3 MG,UNK
     Route: 042
     Dates: start: 20171031, end: 20171101
  6. DAFALGAN CODEINE [Suspect]
     Active Substance: ACETAMINOPHEN\CODEINE PHOSPHATE
     Indication: AGITATION
     Dosage: 5 UNK
     Route: 048
     Dates: start: 20171101, end: 20171101
  7. DAFALGAN CODEINE [Suspect]
     Active Substance: ACETAMINOPHEN\CODEINE PHOSPHATE
     Dosage: 1.25 MG
     Route: 042
     Dates: start: 20171031, end: 20171102
  8. POLARAMINE [Suspect]
     Active Substance: DEXCHLORPHENIRAMINE MALEATE
     Indication: RASH PRURITIC
     Dosage: 1 DF,QD
     Route: 042
     Dates: start: 20171102, end: 20171102
  9. DAFALGAN CODEINE [Suspect]
     Active Substance: ACETAMINOPHEN\CODEINE PHOSPHATE
     Indication: RASH PRURITIC
     Dosage: 3 MG
     Route: 042
     Dates: start: 20171031, end: 20171101
  10. DROPERIDOL. [Suspect]
     Active Substance: DROPERIDOL
     Indication: AGITATION
     Dosage: 1.25 MG,UNK
     Route: 042
     Dates: start: 20171031, end: 20171102
  11. MORPHINE HYDROCHLORIDE [Suspect]
     Active Substance: MORPHINE HYDROCHLORIDE
     Indication: PROCEDURAL PAIN
     Dosage: 3 MG,UNK
     Route: 042
     Dates: start: 20171031, end: 20171101
  12. LOVENOX [Suspect]
     Active Substance: ENOXAPARIN SODIUM
     Indication: THROMBOSIS PROPHYLAXIS
     Dosage: 8000 IU,QD
     Route: 042
     Dates: start: 20171031, end: 20171101
  13. LEXOMIL [Suspect]
     Active Substance: BROMAZEPAM
     Indication: ANXIETY
     Dosage: 3 MG,UNK
     Route: 048
     Dates: start: 20171101, end: 20171101
  14. LEXOMIL [Suspect]
     Active Substance: BROMAZEPAM
     Indication: ANXIETY
  15. DAFALGAN CODEINE [Suspect]
     Active Substance: ACETAMINOPHEN\CODEINE PHOSPHATE
     Indication: NEUROMUSCULAR BLOCKADE REVERSAL
     Dosage: 200 UNK
     Route: 042
  16. PARACETAMOL [Suspect]
     Active Substance: ACETAMINOPHEN
     Indication: PROCEDURAL PAIN
     Dosage: 1 DF,Q6H
     Route: 042
     Dates: start: 20171031, end: 20171101
  17. DAFALGAN CODEINE [Suspect]
     Active Substance: ACETAMINOPHEN\CODEINE PHOSPHATE
     Indication: PROCEDURAL PAIN
     Dosage: 1 DF,Q6H
     Route: 042
     Dates: start: 20171101, end: 20171101
  18. BRIDION [Suspect]
     Active Substance: SUGAMMADEX
     Indication: NEUROMUSCULAR BLOCKADE REVERSAL
     Dosage: 200 MG,UNK
     Route: 042

REACTIONS (1)
  - Drug reaction with eosinophilia and systemic symptoms [Recovered/Resolved]

NARRATIVE: CASE EVENT DATE: 20171031
